FAERS Safety Report 5846160-7 (Version None)
Quarter: 2008Q3

REPORT INFORMATION
  Report Type: 
  Country: None (occurrence: None)
  Receive Date: 20080814
  Receipt Date: 20080808
  Transmission Date: 20090109
  Serious: Yes (Disabling, Other)
  Sender: FDA-Public Use
  Company Number: GB-PFIZER INC-2008067407

PATIENT
  Age: 63 Year
  Sex: Female

DRUGS (8)
  1. AMLODIPINE [Suspect]
     Indication: HYPERTENSION
     Route: 048
     Dates: start: 20071127, end: 20080105
  2. PREDNISOLONE [Suspect]
     Indication: RHEUMATOID ARTHRITIS
     Route: 048
  3. CANDESARTAN [Concomitant]
     Indication: HYPERTENSION
     Route: 048
  4. CYANOCOBALAMIN [Concomitant]
     Indication: VITAMIN B12 DEFICIENCY
     Dates: start: 20040511, end: 20071220
  5. FUROSEMIDE [Concomitant]
     Indication: RENAL AMYLOIDOSIS
     Route: 048
  6. INDAPAMIDE [Concomitant]
     Indication: HYPERTENSION
     Route: 048
  7. OMEPRAZOLE [Concomitant]
     Indication: GASTROOESOPHAGEAL REFLUX DISEASE
     Route: 048
  8. PREGADAY [Concomitant]
     Indication: RENAL AMYLOIDOSIS
     Route: 048

REACTIONS (7)
  - ANXIETY [None]
  - DEPRESSED MOOD [None]
  - DEPRESSION [None]
  - FEELING COLD [None]
  - SUICIDAL IDEATION [None]
  - TINNITUS [None]
  - TREMOR [None]
